FAERS Safety Report 19251307 (Version 4)
Quarter: 2022Q1

REPORT INFORMATION
  Report Type: Report from Study
  Country: None (occurrence: BR)
  Receive Date: 20210512
  Receipt Date: 20220310
  Transmission Date: 20220423
  Serious: Yes (Hospitalization, Other)
  Sender: FDA-Public Use
  Company Number: BR-AKCEA THERAPEUTICS, INC.-2021IS001375

PATIENT
  Age: 43 Year
  Sex: Male
  Weight: 74.182 kg

DRUGS (9)
  1. TEGSEDI [Suspect]
     Active Substance: INOTERSEN SODIUM
     Indication: Polyneuropathy
     Route: 058
     Dates: start: 201507
  2. TEGSEDI [Suspect]
     Active Substance: INOTERSEN SODIUM
     Indication: Hereditary neuropathic amyloidosis
  3. DEVICE [Suspect]
     Active Substance: DEVICE
  4. TEGSEDI [Suspect]
     Active Substance: INOTERSEN SODIUM
     Route: 058
  5. CIPROFLOXACIN [Concomitant]
     Active Substance: CIPROFLOXACIN
  6. CLINDAMYCIN [Concomitant]
     Active Substance: CLINDAMYCIN
  7. VONAL [Concomitant]
     Route: 065
  8. ACETAMINOPHEN [Concomitant]
     Active Substance: ACETAMINOPHEN
     Route: 065
  9. ERYTHIN [Concomitant]
     Route: 065

REACTIONS (17)
  - Thermal burn [Not Recovered/Not Resolved]
  - Localised infection [None]
  - Bacterial infection [None]
  - Pruritus [None]
  - Localised infection [None]
  - Infected skin ulcer [None]
  - Limb injury [None]
  - Hypoaesthesia [None]
  - Neuropathy peripheral [None]
  - Diarrhoea [None]
  - Off label use [None]
  - Chills [None]
  - Vomiting [None]
  - Feeling abnormal [None]
  - Nausea [None]
  - Thermal burn [None]
  - Thermal burn [None]

NARRATIVE: CASE EVENT DATE: 20190301
